FAERS Safety Report 20644980 (Version 2)
Quarter: 2022Q2

REPORT INFORMATION
  Report Type: Spontaneous
  Country: US (occurrence: US)
  Receive Date: 20220328
  Receipt Date: 20220413
  Transmission Date: 20220720
  Serious: No
  Sender: FDA-Public Use
  Company Number: US-SA-SAC20220322000129

PATIENT
  Age: 7 Year
  Sex: Male
  Weight: 63.5 kg

DRUGS (1)
  1. DUPIXENT [Suspect]
     Active Substance: DUPILUMAB
     Indication: Dermatitis atopic
     Dosage: 300 MG, QOW
     Route: 058

REACTIONS (2)
  - Hypersensitivity [Not Recovered/Not Resolved]
  - Swelling [Unknown]
